FAERS Safety Report 6538306-2 (Version None)
Quarter: 2010Q1

REPORT INFORMATION
  Report Type: 
  Country: None (occurrence: None)
  Receive Date: 20100112
  Receipt Date: 20100112
  Transmission Date: 20100710
  Serious: Yes (Hospitalization, Other)
  Sender: FDA-Public Use
  Company Number: None

PATIENT
  Age: 41 Year
  Sex: Female
  Weight: 57.6068 kg

DRUGS (1)
  1. YAZ [Suspect]
     Indication: MENORRHAGIA
     Dosage: 0.3 ETHINYL ESTRADIOL AND 0.02 DAILY PO
     Route: 048
     Dates: start: 20090630, end: 20091222

REACTIONS (1)
  - PULMONARY EMBOLISM [None]
